FAERS Safety Report 23555015 (Version 1)
Quarter: 2024Q1

REPORT INFORMATION
  Report Type: Spontaneous
  Country: US (occurrence: None)
  Receive Date: 20240222
  Receipt Date: 20240222
  Transmission Date: 20240410
  Serious: Yes (Other)
  Sender: FDA-Public Use
  Company Number: None

PATIENT
  Age: 40 Year
  Sex: Male

DRUGS (7)
  1. NURTEC ODT [Suspect]
     Active Substance: RIMEGEPANT SULFATE
     Indication: Migraine prophylaxis
     Dosage: 75 MG EVERY OTHER DAY   ODT ?
     Route: 050
     Dates: start: 20240119, end: 20240220
  2. vitamin C 1000mg tablets once daily [Concomitant]
  3. vitamin D3 50mcg capsule once daily [Concomitant]
  4. pepcid 20mg tablet once daily [Concomitant]
  5. ibuprofen 800mg tablet every 6-8 hours prn [Concomitant]
  6. protonix 40mg DR tablet once daily [Concomitant]
  7. prevident 5000 booster plus 1.1% paste [Concomitant]

REACTIONS (4)
  - Dyspnoea exertional [None]
  - Dyspnoea at rest [None]
  - Pain in extremity [None]
  - Peripheral swelling [None]

NARRATIVE: CASE EVENT DATE: 20240220
